FAERS Safety Report 21631564 (Version 1)
Quarter: 2022Q4

REPORT INFORMATION
  Report Type: Report from Study
  Country: CA (occurrence: CA)
  Receive Date: 20221123
  Receipt Date: 20221123
  Transmission Date: 20230113
  Serious: Yes (Hospitalization)
  Sender: FDA-Public Use
  Company Number: CA-BIOGEN-2022BI01157771

PATIENT
  Sex: Female

DRUGS (3)
  1. DALFAMPRIDINE [Suspect]
     Active Substance: DALFAMPRIDINE
     Indication: Gait disturbance
     Route: 050
     Dates: start: 20220305
  2. DALFAMPRIDINE [Suspect]
     Active Substance: DALFAMPRIDINE
     Route: 050
     Dates: start: 20220305
  3. COVID-19 VACCINE NOS [Suspect]
     Active Substance: COVID-19 VACCINE NOS
     Indication: COVID-19 prophylaxis
     Route: 050

REACTIONS (4)
  - Gastrointestinal bacterial infection [Unknown]
  - Immunisation reaction [Recovered/Resolved]
  - Blood potassium decreased [Recovered/Resolved]
  - Multiple sclerosis relapse [Recovered/Resolved]

NARRATIVE: CASE EVENT DATE: 20220101
